FAERS Safety Report 8076897-3 (Version None)
Quarter: 2012Q1

REPORT INFORMATION
  Report Type: 
  Country: None (occurrence: None)
  Receive Date: 20120127
  Receipt Date: 20120120
  Transmission Date: 20120608
  Serious: Yes (Other)
  Sender: FDA-Public Use
  Company Number: US-ABBOTT-12P-163-0895270-00

PATIENT
  Sex: Female
  Weight: 56.296 kg

DRUGS (5)
  1. METHOTREXATE [Concomitant]
     Indication: RHEUMATOID ARTHRITIS
  2. MAGNESIUM [Concomitant]
     Indication: MINERAL SUPPLEMENTATION
  3. FOLIC ACID [Concomitant]
     Indication: VITAMIN SUPPLEMENTATION
  4. HUMIRA [Suspect]
     Indication: PSORIATIC ARTHROPATHY
     Route: 058
     Dates: start: 20080517
  5. HUMIRA [Suspect]
     Indication: PSORIASIS

REACTIONS (7)
  - HERPES ZOSTER [None]
  - CEREBRAL ARTERITIS [None]
  - INFECTION [None]
  - MONOPLEGIA [None]
  - APHASIA [None]
  - STOMATITIS [None]
  - TRANSIENT ISCHAEMIC ATTACK [None]
